FAERS Safety Report 9521938 (Version 1)
Quarter: 2013Q1

REPORT INFORMATION
  Report Type: Spontaneous
  Country: US (occurrence: None)
  Receive Date: 20130305
  Receipt Date: 20130305
  Transmission Date: 20140127
  Serious: Yes (Disabling, Other)
  Sender: FDA-Public Use
  Company Number: 163-21880-12072330

PATIENT
  Sex: Female

DRUGS (21)
  1. REVLIMID [Suspect]
     Indication: PLASMA CELL MYELOMA
     Dosage: 21 IN 21 D
     Route: 048
     Dates: start: 20120419, end: 20120515
  2. LORAZEPAM [Concomitant]
  3. PREDNISONE [Concomitant]
  4. ASPIRIN [Concomitant]
  5. LEVOTHYROXINE [Concomitant]
  6. OMEPRAZOLE [Concomitant]
  7. COLACE [Concomitant]
  8. HYDROCODONE BIT/ACETAMINOPHEN [Concomitant]
  9. HCTZ [Concomitant]
  10. AMLODIPINE BESYLATE [Concomitant]
  11. TUMS [Concomitant]
  12. GABAPENTIN [Concomitant]
  13. HYDROXYZINE HCL [Concomitant]
  14. DEXAMETHASONE [Concomitant]
  15. TOBRADEX [Concomitant]
  16. PAMIDRONATE [Concomitant]
  17. DARBEPOETIN ALFA [Concomitant]
  18. NORMAL SALINE [Concomitant]
  19. FAMOTIDINE [Concomitant]
  20. DEXAMETHASONE SOD PHOSPHATE [Concomitant]
  21. RANITIDINE HCL [Concomitant]

REACTIONS (1)
  - Plasma cell myeloma [None]
